FAERS Safety Report 13282036 (Version 1)
Quarter: 2017Q1

REPORT INFORMATION
  Report Type: Spontaneous
  Country: US (occurrence: US)
  Receive Date: 20170301
  Receipt Date: 20170301
  Transmission Date: 20170428
  Serious: Yes (Hospitalization)
  Sender: FDA-Public Use
  Company Number: None

PATIENT

DRUGS (1)
  1. ESOMEPRAZOLE [Suspect]
     Active Substance: ESOMEPRAZOLE

REACTIONS (8)
  - Chronic kidney disease [None]
  - Acute myocardial infarction [None]
  - Cardiac failure congestive [None]
  - Hypokalaemia [None]
  - Clostridium difficile infection [None]
  - Hyperlipidaemia [None]
  - Chronic obstructive pulmonary disease [None]
  - Hypoalbuminaemia [None]

NARRATIVE: CASE EVENT DATE: 20150403
